FAERS Safety Report 12768626 (Version 8)
Quarter: 2019Q1

REPORT INFORMATION
  Report Type: Spontaneous
  Country: SE (occurrence: SE)
  Receive Date: 20160921
  Receipt Date: 20190223
  Transmission Date: 20190417
  Serious: Yes (Hospitalization, Other)
  Sender: FDA-Public Use
  Company Number: SE-009507513-1609SWE007501

PATIENT
  Age: 22 Year
  Sex: Female

DRUGS (6)
  1. NEXPLANON [Suspect]
     Active Substance: ETONOGESTREL
     Dosage: 1 DF, UNK
     Route: 059
     Dates: start: 201210, end: 201508
  2. NEXPLANON [Suspect]
     Active Substance: ETONOGESTREL
     Dosage: STRENGTH: 68 MG
     Route: 059
     Dates: start: 201608, end: 20160822
  3. KAVEPENIN [Concomitant]
     Active Substance: PHENOXYMETHYLPENICILLIN CALCIUM
     Dosage: UNK
     Dates: start: 201608
  4. NEXPLANON [Suspect]
     Active Substance: ETONOGESTREL
     Indication: CONTRACEPTION
     Dosage: 1 DF, UNK
     Route: 059
     Dates: start: 201608, end: 20160822
  5. NEXPLANON [Suspect]
     Active Substance: ETONOGESTREL
     Indication: CONTRACEPTION
     Dosage: STRENGTH: 68 MG
     Route: 058
     Dates: start: 201512, end: 20160822
  6. NEXPLANON [Suspect]
     Active Substance: ETONOGESTREL
     Dosage: 1 DF, UNK
     Route: 059
     Dates: start: 201508, end: 201601

REACTIONS (25)
  - Hypertension [Unknown]
  - Rash [Not Recovered/Not Resolved]
  - Rash vesicular [Unknown]
  - Lip swelling [Unknown]
  - Hypotension [Unknown]
  - Peripheral swelling [Unknown]
  - Implant site pruritus [Not Recovered/Not Resolved]
  - Syncope [Unknown]
  - Implant site swelling [Not Recovered/Not Resolved]
  - Hypersensitivity [Not Recovered/Not Resolved]
  - Skin discolouration [Unknown]
  - Implant site extravasation [Unknown]
  - Rash generalised [Unknown]
  - Rash pruritic [Unknown]
  - Dermatitis contact [Unknown]
  - Autoimmune disorder [Unknown]
  - Erythema [Unknown]
  - Implant site pruritus [Not Recovered/Not Resolved]
  - Implant site swelling [Not Recovered/Not Resolved]
  - Rash pruritic [Unknown]
  - Joint swelling [Unknown]
  - Rash vesicular [Unknown]
  - Urticaria [Not Recovered/Not Resolved]
  - Implant site oedema [Unknown]
  - Rash [Unknown]

NARRATIVE: CASE EVENT DATE: 201503
